FAERS Safety Report 5362934-3 (Version None)
Quarter: 2007Q2

REPORT INFORMATION
  Report Type: 
  Country: None (occurrence: None)
  Receive Date: 20070614
  Receipt Date: 20070403
  Transmission Date: 20071010
  Serious: Yes (Hospitalization)
  Sender: FDA-Public Use
  Company Number: MEDI-0004993

PATIENT
  Age: 5 Month
  Sex: Female

DRUGS (7)
  1. SYNAGIS [Suspect]
     Indication: ANTIVIRAL PROPHYLAXIS
     Dosage: SEE IMAGE
     Route: 030
     Dates: start: 20060120, end: 20060322
  2. SYNAGIS [Suspect]
     Indication: PREMATURE BABY
     Dosage: SEE IMAGE
     Route: 030
     Dates: start: 20060120, end: 20060322
  3. SYNAGIS [Suspect]
     Indication: ANTIVIRAL PROPHYLAXIS
     Dosage: SEE IMAGE
     Route: 030
     Dates: start: 20060120
  4. SYNAGIS [Suspect]
     Indication: PREMATURE BABY
     Dosage: SEE IMAGE
     Route: 030
     Dates: start: 20060120
  5. VITAMIN A, D, E C (VITAMINS NOS) [Concomitant]
  6. FLUOR (SODIUM FLUORIDE) [Concomitant]
  7. FLUTICASONE PROPIONATE [Concomitant]

REACTIONS (4)
  - BRONCHIOLITIS [None]
  - GASTROENTERITIS [None]
  - LEUKOPENIA [None]
  - NEUTROPENIA [None]
